FAERS Safety Report 5934588-6 (Version None)
Quarter: 2008Q4

REPORT INFORMATION
  Report Type: 
  Country: None (occurrence: None)
  Receive Date: 20081029
  Receipt Date: 20081017
  Transmission Date: 20090506
  Serious: Yes (Other)
  Sender: FDA-Public Use
  Company Number: IE-JNJCH-2008053000

PATIENT
  Age: 5 Year
  Sex: Male

DRUGS (3)
  1. CETIRIZINE HYDROCHLORIDE [Suspect]
     Indication: URTICARIA
     Dosage: TEXT:5 MG
     Route: 048
     Dates: start: 20081005, end: 20081006
  2. ACETAMINOPHEN [Concomitant]
     Route: 065
  3. IBUPROFEN TABLETS [Concomitant]
     Route: 065

REACTIONS (2)
  - LIP SWELLING [None]
  - URTICARIA [None]
